FAERS Safety Report 23237241 (Version 1)
Quarter: 2023Q4

REPORT INFORMATION
  Report Type: Report from Study
  Country: IN (occurrence: IN)
  Receive Date: 20231128
  Receipt Date: 20231128
  Transmission Date: 20240110
  Serious: Yes (Other)
  Sender: FDA-Public Use
  Company Number: IN-002147023-NVSC2023IN251986

PATIENT
  Sex: Female
  Weight: 75 kg

DRUGS (8)
  1. CERTICAN [Suspect]
     Active Substance: EVEROLIMUS
     Indication: Product used for unknown indication
     Dosage: 1.25 MG, BID (0.75 MG AND 0.5 MG)
     Route: 048
  2. PREDNISOLONE [Concomitant]
     Active Substance: PREDNISOLONE
     Indication: Product used for unknown indication
     Dosage: 5 MG, QD
     Route: 065
  3. AMLODIPINE BESYLATE [Concomitant]
     Active Substance: AMLODIPINE BESYLATE
     Indication: Hypertension
     Dosage: 5 MG, QD
     Route: 065
  4. METOPROLOL [Concomitant]
     Active Substance: METOPROLOL
     Indication: Hypertension
     Route: 065
  5. INSULIN HUMAN [Concomitant]
     Active Substance: INSULIN HUMAN
     Indication: Product used for unknown indication
     Dosage: CONC (30/70), 8 INTERNATIONAL UNIT PER GRAM OF HEMOGLOBIN
     Route: 065
  6. METFORMIN HYDROCHLORIDE [Concomitant]
     Active Substance: METFORMIN HYDROCHLORIDE
     Indication: Product used for unknown indication
     Dosage: 500 MG, BID
     Route: 065
  7. BECOSULES [Concomitant]
     Indication: Product used for unknown indication
     Dosage: UNK, QD
     Route: 065
  8. COLAC [Concomitant]
     Indication: Product used for unknown indication
     Route: 065

REACTIONS (3)
  - Vital capacity abnormal [Unknown]
  - Hypertension [Unknown]
  - Blood phosphorus decreased [Unknown]
